FAERS Safety Report 5689515-6 (Version None)
Quarter: 2008Q1

REPORT INFORMATION
  Report Type: 
  Country: None (occurrence: None)
  Receive Date: 20080331
  Receipt Date: 20080228
  Transmission Date: 20080703
  Serious: Yes (Other)
  Sender: FDA-Public Use
  Company Number: AU-PFIZER INC-2008026263

PATIENT
  Sex: Male

DRUGS (3)
  1. CELEBREX [Suspect]
     Indication: ARTHRITIS
  2. AVAPRO [Interacting]
     Dosage: TEXT:APPROXIMATELY 300 MG
  3. SELENIUM [Interacting]
     Dosage: TEXT:4 TO 6 MCG

REACTIONS (6)
  - DISEASE PROGRESSION [None]
  - DRUG INTERACTION [None]
  - DRUG TOLERANCE [None]
  - FEELING ABNORMAL [None]
  - HEADACHE [None]
  - MOBILITY DECREASED [None]
